FAERS Safety Report 5063968-9 (Version None)
Quarter: 2006Q3

REPORT INFORMATION
  Report Type: 
  Country: None (occurrence: None)
  Receive Date: 20060703
  Receipt Date: 20050922
  Transmission Date: 20061208
  Serious: No
  Sender: FDA-Public Use
  Company Number: 2005S1009564

PATIENT
  Age: 29 Year
  Sex: Male
  Weight: 96.1626 kg

DRUGS (9)
  1. CLOZAPINE [Suspect]
     Indication: SCHIZOPHRENIA, PARANOID TYPE
     Dosage: 300 MG;BID;ORAL
     Route: 048
     Dates: start: 20041103, end: 20050817
  2. HALOPERIDOL [Suspect]
     Indication: SCHIZOPHRENIA, PARANOID TYPE
     Dosage: 5 MG;BID;ORAL
     Route: 048
     Dates: start: 20050601, end: 20050613
  3. HALOPERIDOL [Suspect]
     Indication: SCHIZOPHRENIA, PARANOID TYPE
     Dosage: 5 MG;BID;ORAL
     Route: 048
     Dates: start: 20050808
  4. HALOPERIDOL [Suspect]
     Indication: SCHIZOPHRENIA, PARANOID TYPE
     Dosage: 10 MG;BID;ORAL
     Route: 048
     Dates: start: 20050613
  5. LAMICTAL [Suspect]
     Indication: DRUG USE FOR UNKNOWN INDICATION
     Dosage: 50 MG;BID;ORAL
     Route: 048
     Dates: start: 20050524
  6. TOPIRAMATE [Concomitant]
  7. VALPROATE SODIUM [Concomitant]
  8. BENZTROPINE MESYLATE [Concomitant]
  9. LAMOTRIGINE [Concomitant]

REACTIONS (4)
  - ANTIPSYCHOTIC DRUG LEVEL ABOVE THERAPEUTIC [None]
  - DRUG INTERACTION [None]
  - GRAND MAL CONVULSION [None]
  - TONIC CONVULSION [None]
